FAERS Safety Report 5302455-7 (Version None)
Quarter: 2007Q2

REPORT INFORMATION
  Report Type: 
  Country: None (occurrence: None)
  Receive Date: 20070419
  Receipt Date: 20070406
  Transmission Date: 20071010
  Serious: Yes (Hospitalization)
  Sender: FDA-Public Use
  Company Number: US-ELI_LILLY_AND_COMPANY-US200704001574

PATIENT
  Age: 61 Year
  Sex: Female

DRUGS (2)
  1. FORTEO [Suspect]
     Indication: OSTEOPOROSIS
     Dates: end: 20060226
  2. FORTEO [Suspect]
     Dosage: UNK, UNK
     Dates: start: 20061101

REACTIONS (2)
  - BLOOD CALCIUM INCREASED [None]
  - BLOOD PHOSPHORUS DECREASED [None]
